FAERS Safety Report 7250272-3 (Version None)
Quarter: 2011Q1

REPORT INFORMATION
  Report Type: 
  Country: None (occurrence: None)
  Receive Date: 20110119
  Receipt Date: 20110105
  Transmission Date: 20110831
  Serious: Yes (Hospitalization)
  Sender: FDA-Public Use
  Company Number: UTC-003995

PATIENT
  Age: 30 Year
  Sex: Male
  Weight: 66.2 kg

DRUGS (3)
  1. REMODULIN [Suspect]
     Dosage: 216 UG/KG (0.15 UG/KG, 1 IN 1 MIN); SUBCUTANEOUS
     Route: 058
     Dates: start: 20080130
  2. REVATIO [Concomitant]
  3. TRACLEER [Concomitant]

REACTIONS (3)
  - DYSPNOEA [None]
  - OEDEMA [None]
  - OEDEMA PERIPHERAL [None]
